FAERS Safety Report 8359004-9 (Version None)
Quarter: 2012Q2

REPORT INFORMATION
  Report Type: 
  Country: None (occurrence: None)
  Receive Date: 20120515
  Receipt Date: 20120507
  Transmission Date: 20120825
  Serious: No
  Sender: FDA-Public Use
  Company Number: US-BIOGENIDEC-2012BI016281

PATIENT
  Age: 65 Year
  Sex: Male

DRUGS (3)
  1. NAPROXEN (ALEVE) [Concomitant]
     Indication: PAIN
  2. TYSABRI [Suspect]
     Indication: MULTIPLE SCLEROSIS
     Route: 042
     Dates: start: 20120426
  3. IBUPROFEN (ADVIL) [Concomitant]
     Indication: PAIN

REACTIONS (3)
  - PARAESTHESIA [None]
  - MUSCLE TWITCHING [None]
  - DRUG INEFFECTIVE [None]
